FAERS Safety Report 8326018 (Version 6)
Quarter: 2013Q1

REPORT INFORMATION
  Report Type: Spontaneous
  Country: FR (occurrence: FR)
  Receive Date: 20120106
  Receipt Date: 20130204
  Transmission Date: 20140127
  Serious: Yes (Hospitalization, Other)
  Sender: FDA-Public Use
  Company Number: PHHY2012FR000872

PATIENT
  Age: 13 Year
  Sex: Male
  Weight: 76 kg

DRUGS (8)
  1. TRILEPTAL [Suspect]
     Indication: EPILEPSY
     Dosage: 600 MG ON MORNING AND 900 MG ON EVENING
     Dates: start: 2008, end: 20120706
  2. LAMICTAL [Suspect]
     Indication: EPILEPSY
     Dosage: 200 MG INMORNING AND 300 MG INEVENING
  3. LAMICTAL [Suspect]
     Dosage: 300 MG, BID
  4. LAMICTAL [Suspect]
     Dosage: 200 MG INMORNING AND 300 MG INEVENING
  5. URBANYL [Suspect]
     Indication: EPILEPSY
     Dosage: 10 MG, TID
  6. URBANYL [Suspect]
     Dosage: 10 MG, BID
  7. URBANYL [Suspect]
     Dosage: 10 MG, TID
  8. EPITOMAX [Concomitant]

REACTIONS (19)
  - Cholestasis [Recovering/Resolving]
  - Biliary dilatation [Unknown]
  - Alanine aminotransferase increased [Unknown]
  - Blood alkaline phosphatase increased [Recovering/Resolving]
  - Back pain [Unknown]
  - Hemiparesis [Recovered/Resolved]
  - Aphasia [Recovered/Resolved]
  - Consciousness fluctuating [Recovered/Resolved]
  - Dysarthria [Unknown]
  - Pain in extremity [Unknown]
  - Pneumonia [Unknown]
  - Bronchitis viral [Unknown]
  - Inflammation [Unknown]
  - Bronchitis [Unknown]
  - Pyrexia [Unknown]
  - Renal failure [Unknown]
  - Convulsion [Unknown]
  - Cholangitis [Unknown]
  - Restlessness [Unknown]
